FAERS Safety Report 4536817-2 (Version None)
Quarter: 2004Q4

REPORT INFORMATION
  Report Type: 
  Country: None (occurrence: None)
  Receive Date: 20041220
  Receipt Date: 20041206
  Transmission Date: 20050328
  Serious: No
  Sender: FDA-Public Use
  Company Number: 2004GB02978

PATIENT
  Age: 73 Year
  Sex: Male

DRUGS (5)
  1. ATENOLOL [Suspect]
     Indication: HYPERTENSION
     Dosage: 100 MG DAILY PO
     Route: 048
     Dates: start: 20030101
  2. SIMVASTATIN [Suspect]
     Indication: PROPHYLAXIS
     Dosage: 40 MG QD PO
     Route: 048
     Dates: start: 20030101
  3. IRBESARTAN [Suspect]
     Indication: CARDIAC DISORDER
     Dosage: 300 MG QD PO
     Route: 048
     Dates: start: 20030101
  4. IRBESARTAN [Suspect]
     Indication: HYPERTENSION
     Dosage: 300 MG QD PO
     Route: 048
     Dates: start: 20030101
  5. LERCANIDIPINE [Suspect]
     Indication: HYPERTENSION
     Dosage: 10 MG QD PO
     Route: 048
     Dates: start: 20030101

REACTIONS (1)
  - HYPONATRAEMIA [None]
